FAERS Safety Report 5822512-6 (Version None)
Quarter: 2008Q3

REPORT INFORMATION
  Report Type: 
  Country: None (occurrence: None)
  Receive Date: 20080725
  Receipt Date: 20071217
  Transmission Date: 20090109
  Serious: No
  Sender: FDA-Public Use
  Company Number: US-AMGEN-KDL257510

PATIENT
  Sex: Male
  Weight: 99.9 kg

DRUGS (5)
  1. PROCRIT [Suspect]
     Indication: ANAEMIA OF MALIGNANT DISEASE
     Dates: start: 20071101
  2. SYNTHROID [Concomitant]
  3. PLAVIX [Concomitant]
  4. VYTORIN [Concomitant]
  5. AVANDIA [Concomitant]

REACTIONS (2)
  - HAEMOGLOBIN DECREASED [None]
  - OEDEMA PERIPHERAL [None]
